FAERS Safety Report 8315788-7 (Version None)
Quarter: 2012Q2

REPORT INFORMATION
  Report Type: 
  Country: None (occurrence: None)
  Receive Date: 20120426
  Receipt Date: 20120416
  Transmission Date: 20120825
  Serious: Yes (Life-Threatening, Hospitalization)
  Sender: FDA-Public Use
  Company Number: FR-BRISTOL-MYERS SQUIBB COMPANY-16544546

PATIENT
  Age: 55 Year
  Sex: Female

DRUGS (7)
  1. CARBOPLATIN [Suspect]
     Indication: TONSIL CANCER
     Dosage: 1 DF: 1 INJECTION
     Route: 042
     Dates: start: 20120209, end: 20120209
  2. ZANTAC [Suspect]
     Indication: PREMEDICATION
     Dosage: INJECTION
     Route: 042
     Dates: start: 20120216, end: 20120216
  3. ZOFRAN [Suspect]
     Dosage: 1 DF: 1 INJECTION
     Route: 042
     Dates: start: 20120209, end: 20120209
  4. DEXAMETHASONE SODIUM PHOSPHATE [Suspect]
     Indication: TONSIL CANCER
     Dosage: INJECTION
     Route: 042
     Dates: start: 20120216, end: 20120216
  5. ACETAMINOPHEN [Concomitant]
  6. POLARAMINE [Suspect]
     Indication: PREMEDICATION
     Dosage: INJECTION
     Route: 042
     Dates: start: 20120216, end: 20120216
  7. ERBITUX [Suspect]
     Indication: TONSIL CANCER
     Dosage: INJECTION
     Route: 042
     Dates: start: 20120216, end: 20120216

REACTIONS (3)
  - GASTRIC ULCER HAEMORRHAGE [None]
  - ANAEMIA [None]
  - MELAENA [None]
